FAERS Safety Report 25849898 (Version 1)
Quarter: 2025Q3

REPORT INFORMATION
  Report Type: Spontaneous
  Country: US (occurrence: US)
  Receive Date: 20250926
  Receipt Date: 20250926
  Transmission Date: 20251021
  Serious: Yes (Hospitalization, Other)
  Sender: ALEXION PHARMACEUTICALS
  Company Number: US-AstraZeneca-CH-00956376AP

PATIENT
  Sex: Female

DRUGS (2)
  1. TEZSPIRE [Suspect]
     Active Substance: TEZEPELUMAB-EKKO
     Route: 065
  2. TEZSPIRE [Suspect]
     Active Substance: TEZEPELUMAB-EKKO

REACTIONS (18)
  - Product storage error [Unknown]
  - Accidental exposure to product [Unknown]
  - Device leakage [Unknown]
  - Pain [Recovered/Resolved]
  - Incorrect dose administered by device [Unknown]
  - Asthma [Unknown]
  - Inappropriate schedule of product administration [Unknown]
  - Cystitis [Unknown]
  - Kidney infection [Unknown]
  - Hypotension [Unknown]
  - Sepsis [Unknown]
  - Pneumonia [Unknown]
  - Venous thrombosis [Unknown]
  - Pulmonary embolism [Unknown]
  - Contusion [Unknown]
  - Renal failure [Unknown]
  - Malaise [Unknown]
  - Urinary tract infection [Unknown]
